FAERS Safety Report 9630521 (Version 2)
Quarter: 2016Q3

REPORT INFORMATION
  Report Type: Spontaneous
  Country: TR (occurrence: TR)
  Receive Date: 20131018
  Receipt Date: 20160906
  Transmission Date: 20161109
  Serious: Yes (Death, Hospitalization)
  Sender: FDA-Public Use
  Company Number: TR-RANBAXY-2013US-74219

PATIENT
  Age: 57 Year
  Sex: Male

DRUGS (2)
  1. PANTOPRAZOL [Suspect]
     Active Substance: PANTOPRAZOLE SODIUM
     Indication: PEPTIC ULCER
     Dosage: UNK
     Route: 065
  2. METOCLOPRAMIDE. [Suspect]
     Active Substance: METOCLOPRAMIDE
     Indication: PEPTIC ULCER
     Dosage: UNK
     Route: 065

REACTIONS (18)
  - Mesenteric arterial occlusion [Unknown]
  - Intestinal ischaemia [Unknown]
  - Blood pressure increased [Recovering/Resolving]
  - Platelet count decreased [Unknown]
  - Drug ineffective [Unknown]
  - Coeliac artery occlusion [Unknown]
  - Blood urea increased [Unknown]
  - Blood lactate dehydrogenase increased [Unknown]
  - Cardiac arrest [Fatal]
  - Renal artery occlusion [Unknown]
  - White blood cell count increased [Unknown]
  - Blood creatinine increased [Unknown]
  - Aspartate aminotransferase increased [Unknown]
  - Alanine aminotransferase increased [Unknown]
  - Aortic dissection [Unknown]
  - Intestinal ulcer [Unknown]
  - Activated partial thromboplastin time shortened [Unknown]
  - Blood glucose increased [Unknown]
